FAERS Safety Report 9917301 (Version 3)
Quarter: 2014Q1

REPORT INFORMATION
  Report Type: Spontaneous
  Country: US (occurrence: US)
  Receive Date: 20140221
  Receipt Date: 20140311
  Transmission Date: 20141002
  Serious: Yes (Death, Hospitalization)
  Sender: FDA-Public Use
  Company Number: US-BAXTER-2014BAX007475

PATIENT
  Sex: Male

DRUGS (2)
  1. DIANEAL LOW CALCIUM [Suspect]
     Indication: PERITONEAL DIALYSIS
     Route: 033
     Dates: start: 201304, end: 20140209
  2. DIANEAL LOW CALCIUM [Suspect]
     Indication: PERITONEAL DIALYSIS
     Route: 033
     Dates: start: 201304, end: 20140209

REACTIONS (5)
  - Cardiac arrest [Fatal]
  - Myocardial infarction [Fatal]
  - Withdrawal of life support [Fatal]
  - Groin abscess [Recovering/Resolving]
  - Infection [Unknown]
